FAERS Safety Report 4604120-8 (Version None)
Quarter: 2005Q1

REPORT INFORMATION
  Report Type: 
  Country: None (occurrence: None)
  Receive Date: 20050308
  Receipt Date: 20050308
  Transmission Date: 20050727
  Serious: Yes (Hospitalization)
  Sender: FDA-Public Use
  Company Number: None

PATIENT
  Age: 74 Year
  Sex: Male
  Weight: 93.8946 kg

DRUGS (6)
  1. ASPIRIN [Suspect]
     Dosage: 300 MG DAILY ORAL
     Route: 048
     Dates: start: 20010101, end: 20041215
  2. APAP TAB [Concomitant]
  3. CARVEDILOL [Concomitant]
  4. LISINOPRIL [Concomitant]
  5. SIMVASTATIN [Concomitant]
  6. GATIFLOXICIN [Concomitant]

REACTIONS (1)
  - FAECES DISCOLOURED [None]
